FAERS Safety Report 19683911 (Version 5)
Quarter: 2022Q3

REPORT INFORMATION
  Report Type: Spontaneous
  Country: FR (occurrence: FR)
  Receive Date: 20210811
  Receipt Date: 20220729
  Transmission Date: 20221026
  Serious: Yes (Hospitalization, Disabling, Other)
  Sender: FDA-Public Use
  Company Number: FR-THERAMEX-2021000843

PATIENT
  Age: 50 Year
  Sex: Female
  Weight: 61 kg

DRUGS (35)
  1. KEPPRA [Suspect]
     Active Substance: LEVETIRACETAM
     Indication: Product used for unknown indication
     Dosage: 500MG
  2. DIANE (CYPROTERONE ACETATE\ETHINYL ESTRADIOL) [Suspect]
     Active Substance: CYPROTERONE ACETATE\ETHINYL ESTRADIOL
     Indication: Haemorrhage
     Dosage: 35MG
     Dates: start: 1999, end: 2001
  3. DIANE (CYPROTERONE ACETATE\ETHINYL ESTRADIOL) [Suspect]
     Active Substance: CYPROTERONE ACETATE\ETHINYL ESTRADIOL
     Indication: Migraine
  4. CHLORMADINONE ACETATE [Suspect]
     Active Substance: CHLORMADINONE ACETATE
     Indication: Migraine
     Dosage: UNK
     Dates: start: 20011105, end: 200211
  5. CHLORMADINONE ACETATE [Suspect]
     Active Substance: CHLORMADINONE ACETATE
     Indication: Migraine
     Dosage: UNK
     Dates: start: 2017, end: 2019
  6. CHLORMADINONE ACETATE [Suspect]
     Active Substance: CHLORMADINONE ACETATE
     Dosage: UNK
     Dates: start: 20190226
  7. BROMAZEPAM [Suspect]
     Active Substance: BROMAZEPAM
     Indication: Product used for unknown indication
     Dosage: UNK
  8. BROMAZEPAM [Suspect]
     Active Substance: BROMAZEPAM
  9. NOMEGESTROL ACETATE [Suspect]
     Active Substance: NOMEGESTROL ACETATE
     Indication: Haemorrhage
     Dosage: UNK
     Dates: start: 2002, end: 2011
  10. NOMEGESTROL ACETATE [Suspect]
     Active Substance: NOMEGESTROL ACETATE
     Indication: Migraine
     Dosage: UNK
     Dates: start: 201103
  11. NOMEGESTROL ACETATE [Suspect]
     Active Substance: NOMEGESTROL ACETATE
     Indication: Intermenstrual bleeding
  12. NOMEGESTROL ACETATE [Suspect]
     Active Substance: NOMEGESTROL ACETATE
     Indication: Migraine
  13. NOMEGESTROL ACETATE [Suspect]
     Active Substance: NOMEGESTROL ACETATE
     Indication: Haemorrhage
  14. SINGULAIR [Suspect]
     Active Substance: MONTELUKAST SODIUM
     Indication: Product used for unknown indication
     Dosage: UNK
  15. SINGULAIR [Suspect]
     Active Substance: MONTELUKAST SODIUM
  16. ESCITALOPRAM OXALATE [Suspect]
     Active Substance: ESCITALOPRAM OXALATE
     Indication: Product used for unknown indication
     Dosage: 15MG
  17. ALMOTRIPTAN MALATE [Suspect]
     Active Substance: ALMOTRIPTAN MALATE
     Indication: Headache
     Dosage: UNK
  18. ALMOTRIPTAN MALATE [Suspect]
     Active Substance: ALMOTRIPTAN MALATE
  19. VENLAFAXINE HYDROCHLORIDE [Suspect]
     Active Substance: VENLAFAXINE HYDROCHLORIDE
     Indication: Headache
     Dosage: UNK
  20. ALBUTEROL SULFATE [Suspect]
     Active Substance: ALBUTEROL SULFATE
     Indication: Product used for unknown indication
     Dosage: UNK
  21. MEDROL [Suspect]
     Active Substance: METHYLPREDNISOLONE
     Indication: Product used for unknown indication
     Dosage: 4MG
  22. INDOMETHACIN [Suspect]
     Active Substance: INDOMETHACIN
     Indication: Headache
     Dosage: UNK
  23. CYPROTERONE ACETATE [Suspect]
     Active Substance: CYPROTERONE ACETATE
     Indication: Hirsutism
     Dosage: 1G
     Dates: start: 20110506, end: 201506
  24. CYPROTERONE ACETATE [Suspect]
     Active Substance: CYPROTERONE ACETATE
     Indication: Hypertrichosis
     Dosage: 1G, UNK
     Dates: start: 20150617
  25. CYPROTERONE ACETATE [Suspect]
     Active Substance: CYPROTERONE ACETATE
     Dosage: 1G, UNK
     Dates: start: 201105, end: 201506
  26. CYPROTERONE ACETATE [Suspect]
     Active Substance: CYPROTERONE ACETATE
     Dosage: 500MG
     Dates: start: 201505
  27. AMITRIPTYLINE HYDROCHLORIDE [Suspect]
     Active Substance: AMITRIPTYLINE HYDROCHLORIDE
     Indication: Headache
     Dosage: UNK
  28. AMITRIPTYLINE HYDROCHLORIDE [Suspect]
     Active Substance: AMITRIPTYLINE HYDROCHLORIDE
     Indication: Headache
  29. OXETORONE [Suspect]
     Active Substance: OXETORONE
     Indication: Headache
     Dosage: UNK
  30. OXETORONE [Suspect]
     Active Substance: OXETORONE
  31. ASPIRIN LYSINE\METOCLOPRAMIDE HYDROCHLORIDE [Suspect]
     Active Substance: ASPIRIN LYSINE\METOCLOPRAMIDE HYDROCHLORIDE
     Indication: Headache
     Dosage: UNK
  32. ASPIRIN LYSINE\METOCLOPRAMIDE HYDROCHLORIDE [Suspect]
     Active Substance: ASPIRIN LYSINE\METOCLOPRAMIDE HYDROCHLORIDE
     Indication: Headache
  33. ESTRADIOL [Concomitant]
     Active Substance: ESTRADIOL
     Indication: Hair growth abnormal
  34. ESTRADIOL [Concomitant]
     Active Substance: ESTRADIOL
     Indication: Dysmenorrhoea
  35. ALBUTEROL [Suspect]
     Active Substance: ALBUTEROL
     Indication: Asthma

REACTIONS (67)
  - Meningioma [Not Recovered/Not Resolved]
  - Exophthalmos [Recovered/Resolved]
  - Disability [Unknown]
  - Eye pain [Not Recovered/Not Resolved]
  - Headache [Not Recovered/Not Resolved]
  - Eyelid ptosis [Not Recovered/Not Resolved]
  - Condition aggravated [Recovered/Resolved]
  - Paraesthesia [Not Recovered/Not Resolved]
  - Mydriasis [Not Recovered/Not Resolved]
  - Amnesia [Not Recovered/Not Resolved]
  - Ligament sprain [Unknown]
  - Nausea [Not Recovered/Not Resolved]
  - Somnolence [Not Recovered/Not Resolved]
  - Asthenia [Not Recovered/Not Resolved]
  - Coordination abnormal [Not Recovered/Not Resolved]
  - Dizziness [Unknown]
  - Hypoaesthesia eye [Recovered/Resolved]
  - Heterophoria [Recovered/Resolved]
  - Anisocoria [Not Recovered/Not Resolved]
  - Impaired quality of life [Recovered/Resolved]
  - Pain [Unknown]
  - Visual impairment [Not Recovered/Not Resolved]
  - Hypocalcaemia [Not Recovered/Not Resolved]
  - Gait disturbance [Not Recovered/Not Resolved]
  - Diplopia [Unknown]
  - Photophobia [Recovered/Resolved]
  - Epilepsy [Not Recovered/Not Resolved]
  - Neck pain [Not Recovered/Not Resolved]
  - Depression [Not Recovered/Not Resolved]
  - Migraine with aura [Not Recovered/Not Resolved]
  - Back pain [Not Recovered/Not Resolved]
  - Asthenopia [Not Recovered/Not Resolved]
  - Eye injury [Not Recovered/Not Resolved]
  - Malaise [Not Recovered/Not Resolved]
  - Clumsiness [Not Recovered/Not Resolved]
  - Blindness [Not Recovered/Not Resolved]
  - Migraine with aura [Not Recovered/Not Resolved]
  - Fatigue [Not Recovered/Not Resolved]
  - Fall [Not Recovered/Not Resolved]
  - Hypertrichosis [Unknown]
  - General physical health deterioration [Not Recovered/Not Resolved]
  - Intermenstrual bleeding [Unknown]
  - Hot flush [Not Recovered/Not Resolved]
  - Movement disorder [Unknown]
  - Limb discomfort [Unknown]
  - Upper limb fracture [Unknown]
  - Muscle twitching [Unknown]
  - Amenorrhoea [Unknown]
  - Nervous system disorder [Recovering/Resolving]
  - Communication disorder [Not Recovered/Not Resolved]
  - Night sweats [Unknown]
  - Tremor [Not Recovered/Not Resolved]
  - Retrograde amnesia [Not Recovered/Not Resolved]
  - Cognitive disorder [Not Recovered/Not Resolved]
  - Intermenstrual bleeding [Not Recovered/Not Resolved]
  - Hyperhidrosis [Unknown]
  - Balance disorder [Not Recovered/Not Resolved]
  - Discomfort [Not Recovered/Not Resolved]
  - Tenderness [Not Recovered/Not Resolved]
  - Crying [Unknown]
  - Tachycardia [Unknown]
  - Vertigo [Not Recovered/Not Resolved]
  - Ill-defined disorder [Unknown]
  - Phonophobia [Unknown]
  - Sleep disorder [Not Recovered/Not Resolved]
  - Eye movement disorder [Recovered/Resolved]
  - Apathy [Not Recovered/Not Resolved]

NARRATIVE: CASE EVENT DATE: 20051025
